FAERS Safety Report 4711496-X (Version None)
Quarter: 2005Q3

REPORT INFORMATION
  Report Type: 
  Country: None (occurrence: None)
  Receive Date: 20050711
  Receipt Date: 20050623
  Transmission Date: 20060218
  Serious: Yes (Other)
  Sender: FDA-Public Use
  Company Number: 200511050BCC

PATIENT
  Age: 45 Year
  Sex: Female
  Weight: 80.7403 kg

DRUGS (3)
  1. ALEVE [Suspect]
     Indication: ARTHRALGIA
     Dosage: 440 MG, QD, ORAL
     Route: 048
     Dates: end: 20041201
  2. CYCLOBENZAPRINE HCL [Concomitant]
  3. CIGARETTES [Concomitant]

REACTIONS (3)
  - BLOOD PRESSURE INCREASED [None]
  - CARDIAC FLUTTER [None]
  - HEART RATE INCREASED [None]
